FAERS Safety Report 10094549 (Version 1)
Quarter: 2014Q2

REPORT INFORMATION
  Report Type: Spontaneous
  Country: US (occurrence: None)
  Receive Date: 20140418
  Receipt Date: 20140418
  Transmission Date: 20141212
  Serious: Yes (Other)
  Sender: FDA-Public Use
  Company Number: UTC-047201

PATIENT
  Age: 75 Year
  Sex: Female
  Weight: 101.1 kg

DRUGS (1)
  1. TYVASO [Suspect]
     Indication: PULMONARY ARTERIAL HYPERTENSION
     Route: 055
     Dates: start: 20140218

REACTIONS (3)
  - Therapy cessation [None]
  - Dialysis [None]
  - Bilevel positive airway pressure [None]
